FAERS Safety Report 16033346 (Version 1)
Quarter: 2019Q1

REPORT INFORMATION
  Report Type: Spontaneous
  Country: US (occurrence: US)
  Receive Date: 20190305
  Receipt Date: 20190305
  Transmission Date: 20190418
  Serious: Yes (Hospitalization, Other)
  Sender: FDA-Public Use
  Company Number: US-SA-2019SA060009

PATIENT
  Sex: Male

DRUGS (11)
  1. VITAMIN D [Concomitant]
     Active Substance: CHOLECALCIFEROL
  2. PENICILLIN V POTASSIUM. [Concomitant]
     Active Substance: PENICILLIN V POTASSIUM
  3. KETOCONAZOLE. [Concomitant]
     Active Substance: KETOCONAZOLE
  4. PRALUENT [Suspect]
     Active Substance: ALIROCUMAB
     Indication: BONE CANCER
     Dosage: 75 MG, QOW
     Route: 058
  5. BICALUTAMIDE. [Concomitant]
     Active Substance: BICALUTAMIDE
  6. PAROXETINE. [Concomitant]
     Active Substance: PAROXETINE
  7. VITAMIN C [Concomitant]
     Active Substance: ASCORBIC ACID
  8. AMLODIPINE [Concomitant]
     Active Substance: AMLODIPINE BESYLATE
  9. CARVEDILOL. [Concomitant]
     Active Substance: CARVEDILOL
  10. ASPIRIN [ACETYLSALICYLIC ACID] [Concomitant]
     Active Substance: ASPIRIN
  11. CALCIUM [Concomitant]
     Active Substance: CALCIUM

REACTIONS (3)
  - Prostate cancer [Recovered/Resolved]
  - Fatigue [Recovered/Resolved]
  - Blood urine present [Recovered/Resolved]
